FAERS Safety Report 7652686-6 (Version None)
Quarter: 2011Q3

REPORT INFORMATION
  Report Type: 
  Country: None (occurrence: None)
  Receive Date: 20110802
  Receipt Date: 20110802
  Transmission Date: 20111222
  Serious: Yes (Hospitalization, Other)
  Sender: FDA-Public Use
  Company Number: None

PATIENT
  Age: 30 Year
  Sex: Female
  Weight: 69.8539 kg

DRUGS (7)
  1. SOLODYN [Suspect]
     Indication: ACNE
     Dosage: 65MG 1/DAY
     Dates: start: 20110301, end: 20110401
  2. YAZ [Suspect]
     Indication: UTERINE LEIOMYOMA
     Dosage: 3MG 1/DAY
     Dates: start: 20110401
  3. YAZ [Suspect]
     Indication: MENSTRUAL DISORDER
     Dosage: 3MG 1/DAY
     Dates: start: 20110401
  4. YAZ [Suspect]
     Indication: UTERINE LEIOMYOMA
     Dosage: 3MG 1/DAY
     Dates: start: 20110501
  5. YAZ [Suspect]
     Indication: MENSTRUAL DISORDER
     Dosage: 3MG 1/DAY
     Dates: start: 20110501
  6. YAZ [Suspect]
     Indication: UTERINE LEIOMYOMA
     Dosage: 3MG 1/DAY
     Dates: start: 20110301, end: 20110501
  7. YAZ [Suspect]
     Indication: MENSTRUAL DISORDER
     Dosage: 3MG 1/DAY
     Dates: start: 20110301, end: 20110501

REACTIONS (2)
  - BLINDNESS UNILATERAL [None]
  - INTRACRANIAL PRESSURE INCREASED [None]
